FAERS Safety Report 10525063 (Version 1)
Quarter: 2014Q4

REPORT INFORMATION
  Report Type: Spontaneous
  Country: US (occurrence: None)
  Receive Date: 20141015
  Receipt Date: 20141015
  Transmission Date: 20150528
  Serious: Yes (Other)
  Sender: FDA-Public Use
  Company Number: None

PATIENT
  Age: 43 Year
  Sex: Female
  Weight: 57.15 kg

DRUGS (1)
  1. NUCYNTA [Suspect]
     Active Substance: TAPENTADOL HYDROCHLORIDE
     Indication: PAIN
     Dosage: TAKE 1 TABLET FOR PAIN., EVERY 12 HOURS AS, TAKEN BY MOUTH
     Route: 048
     Dates: start: 20141012, end: 20141012

REACTIONS (6)
  - Hallucination [None]
  - Movement disorder [None]
  - Asthenia [None]
  - Tremor [None]
  - Palpitations [None]
  - Fatigue [None]

NARRATIVE: CASE EVENT DATE: 20141012
